FAERS Safety Report 18639775 (Version 2)
Quarter: 2021Q1

REPORT INFORMATION
  Report Type: Spontaneous
  Country: US (occurrence: US)
  Receive Date: 20201220
  Receipt Date: 20210128
  Transmission Date: 20210419
  Serious: No
  Sender: FDA-Public Use
  Company Number: US-ASTRAZENECA-2020SF60321

PATIENT
  Sex: Female
  Weight: 79.8 kg

DRUGS (1)
  1. BYDUREON BCISE [Suspect]
     Active Substance: EXENATIDE
     Indication: TYPE 2 DIABETES MELLITUS
     Route: 058
     Dates: start: 202007

REACTIONS (8)
  - Weight decreased [Unknown]
  - Device issue [Unknown]
  - Accidental exposure to product [Unknown]
  - Injection site bruising [Unknown]
  - Product use issue [Unknown]
  - Injection site pain [Unknown]
  - Eye irritation [Unknown]
  - Device leakage [Unknown]
